FAERS Safety Report 7916987-6 (Version None)
Quarter: 2011Q4

REPORT INFORMATION
  Report Type: 
  Country: None (occurrence: None)
  Receive Date: 20111116
  Receipt Date: 20111116
  Transmission Date: 20120403
  Serious: Yes (Life-Threatening, Hospitalization)
  Sender: FDA-Public Use
  Company Number: None

PATIENT
  Sex: Female
  Weight: 81 kg

DRUGS (2)
  1. EXTRANEAL [Suspect]
     Indication: RENAL FAILURE CHRONIC
     Dosage: UNKNOWN
     Route: 033
  2. EXTRANEAL [Suspect]
     Indication: PERITONEAL DIALYSIS
     Dosage: UNKNOWN
     Route: 033

REACTIONS (6)
  - DEPRESSED LEVEL OF CONSCIOUSNESS [None]
  - TROPONIN INCREASED [None]
  - HYPERTENSION [None]
  - COMPLICATIONS OF TRANSPLANTED KIDNEY [None]
  - HYPOGLYCAEMIA [None]
  - LABORATORY TEST INTERFERENCE [None]
